FAERS Safety Report 7034517-0 (Version None)
Quarter: 2010Q4

REPORT INFORMATION
  Report Type: 
  Country: None (occurrence: None)
  Receive Date: 20101008
  Receipt Date: 20100930
  Transmission Date: 20110411
  Serious: No
  Sender: FDA-Public Use
  Company Number: US-B.I. PHARMACEUTICALS,INC./RIDGEFIELD-2010-BP-10209BP

PATIENT
  Sex: Male

DRUGS (1)
  1. ZANTAC [Suspect]
     Indication: GASTRIC PH DECREASED
     Dosage: 300 MG
     Route: 048
     Dates: start: 20100801, end: 20100801

REACTIONS (2)
  - ABDOMINAL PAIN UPPER [None]
  - DRUG INEFFECTIVE [None]
